FAERS Safety Report 19584890 (Version 6)
Quarter: 2022Q2

REPORT INFORMATION
  Report Type: Report from Study
  Country: US (occurrence: US)
  Receive Date: 20210720
  Receipt Date: 20220502
  Transmission Date: 20220721
  Serious: No
  Sender: FDA-Public Use
  Company Number: NVSC2021US155112

PATIENT
  Sex: Female
  Weight: 56.689 kg

DRUGS (6)
  1. TREPROSTINIL [Suspect]
     Active Substance: TREPROSTINIL
     Indication: Pulmonary arterial hypertension
     Dosage: 84.7 NG/KG/MIN, CONT
     Route: 058
     Dates: start: 20210207, end: 202202
  2. TREPROSTINIL [Suspect]
     Active Substance: TREPROSTINIL
     Dosage: UNK
     Route: 065
  3. OPSUMIT [Concomitant]
     Active Substance: MACITENTAN
     Indication: Product used for unknown indication
     Dosage: UNK
     Route: 065
  4. SILDENAFIL CITRATE [Concomitant]
     Active Substance: SILDENAFIL CITRATE
     Indication: Product used for unknown indication
     Dosage: UNK
     Route: 065
  5. AMBRISENTAN [Concomitant]
     Active Substance: AMBRISENTAN
     Indication: Product used for unknown indication
     Route: 065
  6. REMODULIN [Concomitant]
     Active Substance: TREPROSTINIL
     Indication: Product used for unknown indication
     Route: 065

REACTIONS (10)
  - Infusion site erythema [Unknown]
  - Infusion site pain [Not Recovered/Not Resolved]
  - Exercise tolerance decreased [Unknown]
  - Pyrexia [Unknown]
  - Cough [Unknown]
  - Headache [Unknown]
  - Nasal congestion [Unknown]
  - Condition aggravated [Unknown]
  - Sneezing [Unknown]
  - Hypersensitivity [Unknown]
